FAERS Safety Report 5669428-6 (Version None)
Quarter: 2008Q1

REPORT INFORMATION
  Report Type: 
  Country: None (occurrence: None)
  Receive Date: 20080317
  Receipt Date: 20080310
  Transmission Date: 20080703
  Serious: Yes (Other)
  Sender: FDA-Public Use
  Company Number: A0715855A

PATIENT
  Sex: Male

DRUGS (1)
  1. ADVAIR DISKUS 100/50 [Suspect]
     Indication: ASTHMA
     Route: 055

REACTIONS (6)
  - ASTHMA [None]
  - CHEST DISCOMFORT [None]
  - COUGH [None]
  - DYSPHONIA [None]
  - DYSPNOEA [None]
  - THROAT TIGHTNESS [None]
